FAERS Safety Report 14279501 (Version 5)
Quarter: 2018Q2

REPORT INFORMATION
  Report Type: Spontaneous
  Country: US (occurrence: US)
  Receive Date: 20171213
  Receipt Date: 20180615
  Transmission Date: 20180711
  Serious: Yes (Other)
  Sender: FDA-Public Use
  Company Number: PHHY2017US185550

PATIENT
  Sex: Female

DRUGS (3)
  1. ZOFRAN [Suspect]
     Active Substance: ONDANSETRON HYDROCHLORIDE
     Indication: PRODUCT USED FOR UNKNOWN INDICATION
     Route: 048
  2. ONDANSETRONE MYLAN [Suspect]
     Active Substance: ONDANSETRON HYDROCHLORIDE
     Indication: VOMITING IN PREGNANCY
     Dosage: 1 DF, Q6H
     Route: 048
     Dates: start: 20130712, end: 20131112
  3. ONDANSETRON DR REDDY [Suspect]
     Active Substance: ONDANSETRON
     Indication: VOMITING IN PREGNANCY
     Dosage: 1 DF, Q6H
     Route: 065
     Dates: start: 20130712, end: 20131112

REACTIONS (19)
  - Emotional distress [Unknown]
  - Vulvovaginal candidiasis [Unknown]
  - Bronchitis [Unknown]
  - Obesity [Unknown]
  - Dehydration [Unknown]
  - Anxiety [Unknown]
  - Diarrhoea [Unknown]
  - Migraine [Unknown]
  - Chest pain [Unknown]
  - Deafness [Unknown]
  - Polyhydramnios [Unknown]
  - Maternal exposure during pregnancy [Unknown]
  - Abdominal pain [Unknown]
  - Product use issue [Unknown]
  - Pyelonephritis [Unknown]
  - Pre-eclampsia [Unknown]
  - Injury [Unknown]
  - Syncope [Unknown]
  - Headache [Unknown]
